FAERS Safety Report 12587946 (Version 2)
Quarter: 2016Q4

REPORT INFORMATION
  Report Type: Spontaneous
  Country: BR (occurrence: BR)
  Receive Date: 20160725
  Receipt Date: 20161104
  Transmission Date: 20170207
  Serious: Yes (Hospitalization, Disabling, Other)
  Sender: FDA-Public Use
  Company Number: BR-BAYER-2016-138702

PATIENT
  Sex: Male

DRUGS (4)
  1. NEXAVAR [Suspect]
     Active Substance: SORAFENIB
     Indication: METASTASES TO SPINE
     Dosage: 400 MG, BID (400 MG OM AND 400 MG HS)
     Route: 048
     Dates: start: 201609
  2. LOSARTAN. [Concomitant]
     Active Substance: LOSARTAN
     Indication: HYPERTENSION
     Dosage: 1 DF OM AND 1 DF HS
     Route: 048
     Dates: start: 2015
  3. NEXAVAR [Suspect]
     Active Substance: SORAFENIB
     Indication: HEPATIC CANCER STAGE IV
     Dosage: 400 MG OM AND 400 MG HS
     Route: 048
     Dates: start: 2016, end: 2016
  4. TRAMAL [Concomitant]
     Active Substance: TRAMADOL
     Indication: PAIN
     Route: 048

REACTIONS (7)
  - Haematemesis [Recovered/Resolved]
  - Abdominal distension [Unknown]
  - Peripheral swelling [Unknown]
  - Bedridden [Not Recovered/Not Resolved]
  - Abasia [Not Recovered/Not Resolved]
  - Micturition frequency decreased [Not Recovered/Not Resolved]
  - Haematochezia [Recovered/Resolved]

NARRATIVE: CASE EVENT DATE: 2016
